FAERS Safety Report 6648025-X (Version None)
Quarter: 2010Q1

REPORT INFORMATION
  Report Type: 
  Country: None (occurrence: None)
  Receive Date: 20100319
  Receipt Date: 20100303
  Transmission Date: 20100710
  Serious: Yes (Hospitalization)
  Sender: FDA-Public Use
  Company Number: 10-024-1

PATIENT
  Age: 40 Year
  Sex: Male
  Weight: 64 kg

DRUGS (6)
  1. CEFTRIAXONE [Suspect]
     Indication: CENTRAL NERVOUS SYSTEM INFECTION
     Dosage: 1.2G EVERY TWELVE HOURS; IV - FOR 1 DAY, FOLLOWED BY 1 G, EVERY TWELVE HOURS; IV
     Route: 042
  2. VANCOMYCIN [Concomitant]
  3. ACYCLOVIR [Concomitant]
  4. SODIUM CHLORIDE 0.9% [Concomitant]
  5. PHENYTOIN [Concomitant]
  6. LEVETIRACETAM [Concomitant]

REACTIONS (4)
  - ACUTE GENERALISED EXANTHEMATOUS PUSTULOSIS [None]
  - EOSINOPHIL COUNT INCREASED [None]
  - RENAL FAILURE ACUTE [None]
  - TUBULOINTERSTITIAL NEPHRITIS [None]
